FAERS Safety Report 25435255 (Version 4)
Quarter: 2025Q3

REPORT INFORMATION
  Report Type: Spontaneous
  Country: MX (occurrence: MX)
  Receive Date: 20250613
  Receipt Date: 20250808
  Transmission Date: 20251020
  Serious: Yes (Disabling, Other)
  Sender: SANOFI AVENTIS
  Company Number: MX-SA-2025SA151337

PATIENT
  Age: 57 Year
  Sex: Female
  Weight: 82 kg

DRUGS (10)
  1. DUPIXENT [Suspect]
     Active Substance: DUPILUMAB
     Indication: Nasal polyps
     Route: 058
     Dates: start: 20241111, end: 20241111
  2. DUPIXENT [Suspect]
     Active Substance: DUPILUMAB
     Indication: Asthma
     Dosage: 300 MG, Q15D
     Route: 058
     Dates: start: 202411, end: 20250414
  3. LORATADINE [Concomitant]
     Active Substance: LORATADINE
     Indication: Rhinitis allergic
     Dosage: UNK, QD
  4. FLUTICASONE [Concomitant]
     Active Substance: FLUTICASONE
     Indication: Nasal polyps
     Dosage: 2 DF, Q12H
  5. CHOLECALCIFEROL [Concomitant]
     Active Substance: CHOLECALCIFEROL
     Dosage: 800 IU, QD
  6. CHOLECALCIFEROL [Concomitant]
     Active Substance: CHOLECALCIFEROL
  7. BUDESONIDE\FORMOTEROL [Concomitant]
     Active Substance: BUDESONIDE\FORMOTEROL
     Indication: Asthma
     Dosage: UNK UNK, Q12H
  8. BUDESONIDE [Concomitant]
     Active Substance: BUDESONIDE
     Indication: Nasal polyps
  9. ATORVASTATIN [Concomitant]
     Active Substance: ATORVASTATIN
  10. OMEPRAZOLE [Concomitant]
     Active Substance: OMEPRAZOLE

REACTIONS (9)
  - Pain [Not Recovered/Not Resolved]
  - Gait inability [Recovered/Resolved]
  - Myalgia [Not Recovered/Not Resolved]
  - Arthralgia [Not Recovered/Not Resolved]
  - Muscle contracture [Not Recovered/Not Resolved]
  - Bone density decreased [Unknown]
  - Nasal polyps [Recovering/Resolving]
  - Eosinophil count increased [Not Recovered/Not Resolved]
  - Therapeutic response decreased [Recovering/Resolving]

NARRATIVE: CASE EVENT DATE: 20241111
